FAERS Safety Report 12567072 (Version 1)
Quarter: 2016Q3

REPORT INFORMATION
  Report Type: Spontaneous
  Country: US (occurrence: US)
  Receive Date: 20160718
  Receipt Date: 20160718
  Transmission Date: 20161109
  Serious: Yes (Hospitalization)
  Sender: FDA-Public Use
  Company Number: US-ABBVIE-16P-163-1678490-00

PATIENT
  Age: 45 Year
  Sex: Male

DRUGS (1)
  1. CREON [Suspect]
     Active Substance: PANCRELIPASE AMYLASE\PANCRELIPASE LIPASE\PANCRELIPASE PROTEASE
     Indication: PANCREATECTOMY
     Dosage: 8 PER MEAL, 4 PER SNACK
     Route: 065

REACTIONS (2)
  - Muscle atrophy [Not Recovered/Not Resolved]
  - Infection [Not Recovered/Not Resolved]
